FAERS Safety Report 8451671-4 (Version None)
Quarter: 2012Q2

REPORT INFORMATION
  Report Type: 
  Country: None (occurrence: None)
  Receive Date: 20120620
  Receipt Date: 20120321
  Transmission Date: 20120825
  Serious: No
  Sender: FDA-Public Use
  Company Number: US-VERTEX PHARMACEUTICALS INC.-AE-2012-003568

PATIENT
  Sex: Male
  Weight: 90.8 kg

DRUGS (5)
  1. METOPROLOL SUCCINATE [Concomitant]
  2. RIBAVIRIN [Concomitant]
     Indication: HEPATITIS C
     Route: 048
     Dates: start: 20120106
  3. PEGASYS [Concomitant]
     Indication: HEPATITIS C
     Route: 058
     Dates: start: 20120106
  4. MULTI-VITAMIN [Concomitant]
  5. INCIVEK [Suspect]
     Indication: HEPATITIS C
     Route: 048
     Dates: start: 20120106

REACTIONS (9)
  - ANAEMIA [None]
  - ANORECTAL DISCOMFORT [None]
  - RECTAL DISCHARGE [None]
  - GASTROOESOPHAGEAL REFLUX DISEASE [None]
  - PAIN IN EXTREMITY [None]
  - FREQUENT BOWEL MOVEMENTS [None]
  - VISION BLURRED [None]
  - FATIGUE [None]
  - ASTHENIA [None]
